FAERS Safety Report 9133225 (Version 2)
Quarter: 2013Q1

REPORT INFORMATION
  Report Type: Spontaneous
  Country: PT (occurrence: PT)
  Receive Date: 20130301
  Receipt Date: 20130313
  Transmission Date: 20140127
  Serious: Yes (Hospitalization)
  Sender: FDA-Public Use
  Company Number: PT-B.I. PHARMACEUTICALS,INC./RIDGEFIELD-2013-BI-05375PO

PATIENT
  Age: 75 Year
  Sex: Female
  Weight: 59 kg

DRUGS (5)
  1. PRADAXA [Suspect]
     Indication: ATRIAL FIBRILLATION
     Dosage: 110 MG
     Route: 048
     Dates: start: 20120717
  2. PREDNISOLONE [Concomitant]
     Indication: ARTHRITIS
     Dosage: 15 MG
  3. LASIX [Concomitant]
     Dosage: 2 ANZ
  4. CRESTOR [Concomitant]
  5. DENSICAL [Concomitant]

REACTIONS (1)
  - Venous thrombosis limb [Recovered/Resolved]
